FAERS Safety Report 6045352-4 (Version None)
Quarter: 2009Q1

REPORT INFORMATION
  Report Type: 
  Country: None (occurrence: None)
  Receive Date: 20090116
  Receipt Date: 20090116
  Transmission Date: 20090719
  Serious: No
  Sender: FDA-Public Use
  Company Number: None

PATIENT
  Sex: Female
  Weight: 102.73 kg

DRUGS (1)
  1. WELLBUTRIN SR [Suspect]
     Dosage: ORAL
     Route: 048
     Dates: start: 20081020, end: 20090115

REACTIONS (1)
  - ANXIETY [None]
